FAERS Safety Report 5655980-3 (Version None)
Quarter: 2008Q1

REPORT INFORMATION
  Report Type: 
  Country: None (occurrence: None)
  Receive Date: 20080307
  Receipt Date: 20080225
  Transmission Date: 20080703
  Serious: Yes (Hospitalization, Other)
  Sender: FDA-Public Use
  Company Number: US-PFIZER INC-2008018377

PATIENT
  Sex: Female
  Weight: 72.72 kg

DRUGS (4)
  1. NEURONTIN [Suspect]
     Indication: PAIN
     Route: 048
  2. FENTANYL [Suspect]
     Indication: IMPAIRED GASTRIC EMPTYING
     Dosage: FREQ:EVERY 72 HOUR
     Route: 062
  3. FENTANYL [Suspect]
     Indication: PAIN
  4. PERCOCET [Suspect]
     Indication: ABDOMINAL PAIN

REACTIONS (6)
  - ABDOMINAL PAIN [None]
  - APPLICATION SITE BURN [None]
  - APPLICATION SITE VESICLES [None]
  - DEPRESSION [None]
  - IMPAIRED GASTRIC EMPTYING [None]
  - MOOD ALTERED [None]
